FAERS Safety Report 18677610 (Version 10)
Quarter: 2021Q1

REPORT INFORMATION
  Report Type: Spontaneous
  Country: US (occurrence: US)
  Receive Date: 20201229
  Receipt Date: 20210223
  Transmission Date: 20210419
  Serious: Yes (Hospitalization, Other)
  Sender: FDA-Public Use
  Company Number: US-UNITED THERAPEUTICS-UNT-2020-020413

PATIENT
  Age: 50 Year
  Sex: Female
  Weight: 91.16 kg

DRUGS (6)
  1. REMODULIN [Suspect]
     Active Substance: TREPROSTINIL
     Dosage: 0.03 ?G/KG, CONTINUING
     Route: 041
  2. REMODULIN [Suspect]
     Active Substance: TREPROSTINIL
     Dosage: UNK, CONTINUING AT RATE OF 38 ML/HR
     Route: 041
     Dates: start: 20210114
  3. REMODULIN [Suspect]
     Active Substance: TREPROSTINIL
     Dosage: UNK, CONTINUING AT RATE OF 37ML/HR
     Route: 041
  4. REMODULIN [Suspect]
     Active Substance: TREPROSTINIL
     Indication: PULMONARY ARTERIAL HYPERTENSION
     Dosage: UNK, CONTINUING
     Route: 041
     Dates: start: 20200518
  5. OPSUMIT [Concomitant]
     Active Substance: MACITENTAN
     Indication: PULMONARY ARTERIAL HYPERTENSION
     Dosage: 10 MG, QD (1 TIME EVERY 1 DAY)
     Route: 048
  6. REMODULIN [Suspect]
     Active Substance: TREPROSTINIL
     Dosage: 0.038 ?G/KG, CONTINUING
     Route: 041
     Dates: start: 2020

REACTIONS (23)
  - Dyspnoea [Unknown]
  - Nasal pruritus [Unknown]
  - Respiratory distress [Unknown]
  - Wheezing [Unknown]
  - Respiration abnormal [Unknown]
  - Pain in extremity [Unknown]
  - Respiratory tract congestion [Unknown]
  - Hypoxia [Unknown]
  - Fatigue [Unknown]
  - Insomnia [Unknown]
  - Chest discomfort [Unknown]
  - Dizziness [Unknown]
  - Feeling abnormal [Unknown]
  - Rash [Unknown]
  - Dysphagia [Unknown]
  - Therapy non-responder [Unknown]
  - Dry mouth [Unknown]
  - Vomiting [Unknown]
  - Respiratory failure [Unknown]
  - Mobility decreased [Not Recovered/Not Resolved]
  - Nausea [Unknown]
  - Sinusitis [Unknown]
  - Nasal discharge discolouration [Unknown]

NARRATIVE: CASE EVENT DATE: 2020
